FAERS Safety Report 13449825 (Version 1)
Quarter: 2017Q2

REPORT INFORMATION
  Report Type: Spontaneous
  Country: US (occurrence: US)
  Receive Date: 20170417
  Receipt Date: 20170417
  Transmission Date: 20170830
  Serious: No
  Sender: FDA-Public Use
  Company Number: US-BION-20160054

PATIENT
  Age: 55 Year
  Weight: 117.93 kg

DRUGS (4)
  1. ALEVE [Suspect]
     Active Substance: NAPROXEN SODIUM
  2. STOMACH COATING MEDICINE [Concomitant]
  3. UNKNOWN PROBIOTIC [Concomitant]
  4. ALEVE [Suspect]
     Active Substance: NAPROXEN SODIUM
     Indication: PAIN
     Route: 048
     Dates: start: 20160301, end: 20160414

REACTIONS (6)
  - Diarrhoea [Unknown]
  - Eyelid oedema [Unknown]
  - Pain [Unknown]
  - Vision blurred [Unknown]
  - Gastritis [Unknown]
  - Incorrect drug administration duration [Unknown]
